FAERS Safety Report 7502606-X (Version None)
Quarter: 2011Q2

REPORT INFORMATION
  Report Type: 
  Country: None (occurrence: None)
  Receive Date: 20110525
  Receipt Date: 20110511
  Transmission Date: 20111010
  Serious: Yes (Hospitalization)
  Sender: FDA-Public Use
  Company Number: PHHY2011JP27801

PATIENT
  Sex: Male
  Weight: 85 kg

DRUGS (5)
  1. JANUVIA [Concomitant]
     Dosage: 50 MG, UNK
     Route: 048
     Dates: start: 20091211, end: 20100315
  2. METFORMIN HCL [Concomitant]
     Dosage: 750 MG, UNK
     Route: 048
     Dates: start: 20100507, end: 20101012
  3. SITAGLIPTIN PHOSPHATE [Concomitant]
     Dosage: 100 MG, UNK
     Route: 048
     Dates: start: 20100316, end: 20101012
  4. ALISKIREN [Suspect]
     Indication: HYPERTENSION
     Dosage: 150 MG, QD (BEFORE MEAL)
     Route: 048
     Dates: start: 20091211, end: 20101012
  5. GLUFAST [Concomitant]
     Dosage: 30 MG, UNK
     Route: 048
     Dates: start: 20100413, end: 20100506

REACTIONS (4)
  - CHOLECYSTITIS [None]
  - BLOOD PRESSURE DECREASED [None]
  - PYREXIA [None]
  - ABDOMINAL PAIN [None]
